FAERS Safety Report 11078178 (Version 3)
Quarter: 2015Q3

REPORT INFORMATION
  Report Type: Report from Study
  Country: US (occurrence: US)
  Receive Date: 20150430
  Receipt Date: 20150821
  Transmission Date: 20151125
  Serious: Yes (Hospitalization, Other)
  Sender: FDA-Public Use
  Company Number: US-GILEAD-2015-0151273

PATIENT
  Age: 62 Year
  Sex: Male

DRUGS (17)
  1. REMODULIN [Concomitant]
     Active Substance: TREPROSTINIL
  2. DOBUTAMINE [Concomitant]
     Active Substance: DOBUTAMINE\DOBUTAMINE HYDROCHLORIDE
  3. FLONASE                            /00908302/ [Concomitant]
     Active Substance: MOMETASONE FUROATE
  4. ARMOUR THYROID [Concomitant]
     Active Substance: THYROID, PORCINE\THYROID, UNSPECIFIED
  5. VITAMIN D                          /00107901/ [Concomitant]
     Active Substance: ERGOCALCIFEROL
  6. AMBIEN [Concomitant]
     Active Substance: ZOLPIDEM TARTRATE
  7. LASIX [Concomitant]
     Active Substance: FUROSEMIDE
  8. SYMBICORT [Concomitant]
     Active Substance: BUDESONIDE\FORMOTEROL FUMARATE DIHYDRATE
  9. COUMADIN [Concomitant]
     Active Substance: WARFARIN SODIUM
  10. AMBRISENTAN [Suspect]
     Active Substance: AMBRISENTAN
     Indication: DISEASE PROGRESSION
  11. AMBRISENTAN [Suspect]
     Active Substance: AMBRISENTAN
     Indication: PULMONARY HYPERTENSION
     Dosage: 10 MG, QD
     Route: 065
     Dates: start: 20120111
  12. ATROVENT [Concomitant]
     Active Substance: IPRATROPIUM BROMIDE
  13. MULTIVITAMINES WITH IRON           /02170101/ [Concomitant]
  14. ENALAPRIL/HYDROCHLOROTHIAZIDE [Concomitant]
     Active Substance: ENALAPRIL MALEATE\HYDROCHLOROTHIAZIDE
  15. LIPITOR [Concomitant]
     Active Substance: ATORVASTATIN CALCIUM
  16. ADEMPAS [Concomitant]
     Active Substance: RIOCIGUAT
  17. COREG [Concomitant]
     Active Substance: CARVEDILOL

REACTIONS (2)
  - Pulmonary arterial hypertension [Not Recovered/Not Resolved]
  - Renal disorder [Unknown]
